FAERS Safety Report 6072025-4 (Version None)
Quarter: 2009Q1

REPORT INFORMATION
  Report Type: 
  Country: None (occurrence: None)
  Receive Date: 20090205
  Receipt Date: 20090126
  Transmission Date: 20090719
  Serious: Yes (Hospitalization)
  Sender: FDA-Public Use
  Company Number: 2009-00164

PATIENT
  Age: 50 Year
  Sex: Male
  Weight: 81.6 kg

DRUGS (8)
  1. VELCADE [Suspect]
     Indication: MULTIPLE MYELOMA
     Dosage: 1.3 MG/M2, INTRAVENOUS
     Route: 042
     Dates: start: 20081027, end: 20090114
  2. REVLIMID [Suspect]
     Indication: MULTIPLE MYELOMA
     Dosage: 25 MG
     Dates: start: 20090105, end: 20090114
  3. DECADRON [Suspect]
     Indication: MULTIPLE MYELOMA
     Dosage: 40 MG
     Dates: start: 20081027, end: 20090112
  4. DOXIL [Suspect]
     Indication: MULTIPLE MYELOMA
     Dates: start: 20081027
  5. LOVENOX [Concomitant]
  6. REGLAN [Concomitant]
  7. PRILOSEC [Concomitant]
  8. ACYCLOVIR [Concomitant]

REACTIONS (2)
  - INTESTINAL ISCHAEMIA [None]
  - INTRA-ABDOMINAL HAEMORRHAGE [None]
